FAERS Safety Report 25535848 (Version 2)
Quarter: 2025Q3

REPORT INFORMATION
  Report Type: Report from Study
  Country: CN (occurrence: CN)
  Receive Date: 20250709
  Receipt Date: 20250729
  Transmission Date: 20251021
  Serious: Yes (Other)
  Sender: UCB
  Company Number: CN-NEUROGEN (ZHUHAI) PHARMA CO., LTD.-2025NG02950

PATIENT

DRUGS (1)
  1. KEPPRA [Suspect]
     Active Substance: LEVETIRACETAM
     Indication: Epilepsy

REACTIONS (7)
  - Delirium [Unknown]
  - Restlessness [Unknown]
  - Asthenia [Unknown]
  - Somnolence [Unknown]
  - Multiple drug therapy [Unknown]
  - Product administration error [Unknown]
  - Medication error [Unknown]
